FAERS Safety Report 7720593-6 (Version None)
Quarter: 2011Q3

REPORT INFORMATION
  Report Type: 
  Country: None (occurrence: None)
  Receive Date: 20110831
  Receipt Date: 20110817
  Transmission Date: 20111222
  Serious: Yes (Hospitalization)
  Sender: FDA-Public Use
  Company Number: US-ELI_LILLY_AND_COMPANY-US200908004791

PATIENT
  Sex: Female

DRUGS (10)
  1. CALCIUM CARBONATE [Concomitant]
  2. KLONOPIN [Concomitant]
  3. FORTEO [Suspect]
     Indication: OSTEOPOROSIS
     Dosage: UNK
     Dates: start: 20090715
  4. PREVACID [Concomitant]
  5. DILAUDID [Concomitant]
  6. ASCORBIC ACID [Concomitant]
  7. CYMBALTA [Suspect]
     Indication: DEPRESSION
     Dosage: UNK, UNKNOWN
     Dates: start: 20060101
  8. MULTI-VITAMIN [Concomitant]
  9. VITAMIN D [Concomitant]
  10. BACLOFEN [Concomitant]

REACTIONS (2)
  - RHEUMATOID ARTHRITIS [None]
  - BLOOD CALCIUM INCREASED [None]
